FAERS Safety Report 9270955 (Version 2)
Quarter: 2013Q3

REPORT INFORMATION
  Report Type: Report from Study
  Country: GB (occurrence: GB)
  Receive Date: 20130506
  Receipt Date: 20130703
  Transmission Date: 20140515
  Serious: Yes (Hospitalization, Other)
  Sender: FDA-Public Use
  Company Number: GB-ROCHE-1221004

PATIENT
  Sex: Male

DRUGS (15)
  1. RITUXIMAB [Suspect]
     Indication: RHEUMATOID ARTHRITIS
     Route: 065
     Dates: start: 20110222
  2. HYDROXYZINE [Concomitant]
     Dosage: 10 PM
     Route: 065
  3. LEFLUNOMIDE [Concomitant]
     Dosage: 8 AM
     Route: 065
  4. HYDROXYCHLOROQUINE [Concomitant]
     Route: 065
     Dates: start: 20110222
  5. FUROSEMIDE TAB [Concomitant]
     Route: 065
  6. PARACETAMOL [Concomitant]
     Dosage: IF NEEDED FOR PAINMAX 8 TABS IN 24 HR
     Route: 065
  7. PEPTAC [Concomitant]
     Dosage: IF NEEDED FOR INDIGESTION
     Route: 065
  8. GAVISCON ORAL SUSPENSION (UNITED KINGDOM) [Concomitant]
     Dosage: IF NEEDED FOR INDIGESTION
     Route: 065
  9. LOPERAMIDE [Concomitant]
     Dosage: IF NEEDED FOR LOOSE STOLLS
     Route: 065
  10. DIGOXIN [Concomitant]
     Dosage: 8 AM
     Route: 065
  11. FLAMAZINE [Concomitant]
     Dosage: 1 APPLICATION, AS NEEDED, APPLY TO BOTTOM OF THE SPINE
     Route: 065
  12. LIQUID PARAFFIN [Concomitant]
     Dosage: 1 APPLICATION, AS NEEDED, APPLY TO BOTTOM OF THE SPINE
     Route: 065
  13. FORTISIP (UNITED KINGDOM) [Concomitant]
     Dosage: 1 PM FROM WARD
     Route: 065
  14. RANITIDINE [Concomitant]
     Dosage: 8 AM, 6 PM
     Route: 065
  15. ATORVASTATIN [Concomitant]
     Dosage: 10 PM
     Route: 065

REACTIONS (2)
  - Crohn^s disease [Unknown]
  - Toxicity to various agents [Unknown]
